FAERS Safety Report 17558171 (Version 1)
Quarter: 2020Q1

REPORT INFORMATION
  Report Type: Spontaneous
  Country: US (occurrence: US)
  Receive Date: 20200319
  Receipt Date: 20200319
  Transmission Date: 20200409
  Serious: No
  Sender: FDA-Public Use
  Company Number: US-TEVA-2020-US-1201209

PATIENT
  Sex: Female

DRUGS (2)
  1. CLONAZEPAM TEVA [Suspect]
     Active Substance: CLONAZEPAM
     Indication: ANXIETY
     Route: 065
  2. AMLODIPINE/BENAZEPRIL TEVA [Suspect]
     Active Substance: AMLODIPINE BESYLATE\BENAZEPRIL HYDROCHLORIDE
     Dosage: STRENGTH: 05/20 MILLIGRAM
     Route: 065

REACTIONS (3)
  - Alopecia [Unknown]
  - Drug ineffective [Unknown]
  - Somnolence [Unknown]
